FAERS Safety Report 23994956 (Version 2)
Quarter: 2024Q3

REPORT INFORMATION
  Report Type: Spontaneous
  Country: US (occurrence: US)
  Receive Date: 20240620
  Receipt Date: 20240903
  Transmission Date: 20241016
  Serious: No
  Sender: MERZ
  Company Number: US-Merz Pharmaceuticals GmbH-24-01686

PATIENT
  Age: 47 Year
  Sex: Female
  Weight: 86.183 kg

DRUGS (2)
  1. XEOMIN [Suspect]
     Active Substance: INCOBOTULINUMTOXINA
     Indication: Product used for unknown indication
     Dates: start: 20240320, end: 20240320
  2. BOTOX [Concomitant]
     Active Substance: ONABOTULINUMTOXINA
     Dates: start: 20240122, end: 20240122

REACTIONS (1)
  - Drug ineffective [Unknown]

NARRATIVE: CASE EVENT DATE: 20240101
